FAERS Safety Report 19823413 (Version 2)
Quarter: 2021Q4

REPORT INFORMATION
  Report Type: Spontaneous
  Country: ES (occurrence: ES)
  Receive Date: 20210913
  Receipt Date: 20211207
  Transmission Date: 20220303
  Serious: Yes (Hospitalization)
  Sender: FDA-Public Use
  Company Number: ES-GLAXOSMITHKLINE-ES2020TSO013641

PATIENT
  Age: 76 Year
  Sex: Female

DRUGS (19)
  1. BETAMETHASONE DIPROPIONATE [Suspect]
     Active Substance: BETAMETHASONE DIPROPIONATE
     Indication: Dermatitis acneiform
     Dosage: 0.5 MG, QD
     Route: 061
     Dates: start: 20191213, end: 20191219
  2. HYDROCHLOROTHIAZIDE [Suspect]
     Active Substance: HYDROCHLOROTHIAZIDE
     Indication: Product used for unknown indication
     Dosage: UNK
  3. OMEPRAZOLE [Suspect]
     Active Substance: OMEPRAZOLE
     Indication: Product used for unknown indication
     Dosage: 20 MG, QD
     Route: 042
     Dates: start: 20191213
  4. OMEPRAZOLE [Suspect]
     Active Substance: OMEPRAZOLE
     Dosage: 20 MG, QD
     Route: 048
     Dates: start: 20191223
  5. FLUTICASONE PROPIONATE [Suspect]
     Active Substance: FLUTICASONE PROPIONATE
     Indication: Dermatitis acneiform
     Dosage: 0.5 MG, BID
     Route: 061
     Dates: start: 20191223
  6. LEVOTHYROXINE SODIUM [Concomitant]
     Active Substance: LEVOTHYROXINE SODIUM
     Indication: Hypothyroidism
     Dosage: 75 MG, QD
     Route: 048
     Dates: start: 2009
  7. LOPERAMIDE [Concomitant]
     Active Substance: LOPERAMIDE
     Dosage: 20 MG, QD
     Route: 048
     Dates: start: 20191230, end: 20200103
  8. ONDANSETRON [Concomitant]
     Active Substance: ONDANSETRON
     Dosage: 4 MG, QD
     Route: 048
     Dates: start: 20191230, end: 20200107
  9. DOXYCYCLINE [Concomitant]
     Active Substance: DOXYCYCLINE
     Indication: Dermatitis acneiform
     Dosage: 100 MG, QD
     Route: 048
     Dates: start: 20191213, end: 20191223
  10. MAGNOGENE [MAGNESIUM CHLORIDE] [Concomitant]
     Dosage: 1 DF, QD
     Route: 048
     Dates: start: 201904
  11. DEXTROSE [Concomitant]
     Active Substance: DEXTROSE
     Dosage: UNK
  12. HALOPERIDOL [Concomitant]
     Active Substance: HALOPERIDOL
     Dosage: 2 MG, QD
     Route: 048
     Dates: start: 20200111
  13. ALLOPURINOL [Concomitant]
     Active Substance: ALLOPURINOL
     Indication: Hyperuricaemia
     Dosage: 100 MG, QD
     Route: 048
     Dates: start: 201909
  14. OLMESARTAN MEDOXOMILO + HIDROCLOROTIAZIDA [Concomitant]
     Indication: Hypertension
     Dosage: 40 MG, QD
     Route: 048
     Dates: start: 201908, end: 20200204
  15. DEXAMETHASONE [Concomitant]
     Active Substance: DEXAMETHASONE
     Dosage: 4 MG, QD
     Route: 048
     Dates: start: 20200111
  16. PRIMPERAN [Concomitant]
     Active Substance: METOCLOPRAMIDE HYDROCHLORIDE
     Indication: Vomiting
     Dosage: 10 MG, QD
     Route: 042
     Dates: start: 20191212
  17. PYRIDOXINE HYDROCHLORIDE;THIAMINE HYDROCHLORIDE [Concomitant]
     Dosage: 1 DF, QD
     Route: 048
     Dates: start: 201901
  18. METAMIZOLE MAGNESIUM [Concomitant]
     Active Substance: METAMIZOLE MAGNESIUM
     Indication: Gastrointestinal toxicity
     Dosage: 2 G, TID
     Route: 042
     Dates: start: 20191209
  19. ENOXAPARIN [Concomitant]
     Active Substance: ENOXAPARIN
     Dosage: UNK

REACTIONS (1)
  - Renal failure [Recovered/Resolved]

NARRATIVE: CASE EVENT DATE: 20200114
